FAERS Safety Report 10912088 (Version 2)
Quarter: 2015Q1

REPORT INFORMATION
  Report Type: Report from Study
  Country: US (occurrence: US)
  Receive Date: 20150313
  Receipt Date: 20150325
  Transmission Date: 20150721
  Serious: No
  Sender: FDA-Public Use
  Company Number: US-AMGEN-USASL2015021897

PATIENT
  Age: 52 Year
  Sex: Male

DRUGS (1)
  1. ENBREL [Suspect]
     Active Substance: ETANERCEPT
     Indication: PSORIASIS
     Dosage: 50 MG, QWK
     Route: 065
     Dates: start: 20150112

REACTIONS (5)
  - Penile swelling [Not Recovered/Not Resolved]
  - Pruritus [Not Recovered/Not Resolved]
  - Penis disorder [Not Recovered/Not Resolved]
  - Scrotal disorder [Not Recovered/Not Resolved]
  - Scrotal swelling [Not Recovered/Not Resolved]

NARRATIVE: CASE EVENT DATE: 201503
